FAERS Safety Report 24051726 (Version 2)
Quarter: 2024Q3

REPORT INFORMATION
  Report Type: Report from Study
  Country: DE (occurrence: None)
  Receive Date: 20240704
  Receipt Date: 20240710
  Transmission Date: 20241016
  Serious: Yes (Hospitalization, Other)
  Sender: ASTRAZENECA
  Company Number: 2021A104732

PATIENT
  Sex: Female
  Weight: 67 kg

DRUGS (12)
  1. FULVESTRANT [Suspect]
     Active Substance: FULVESTRANT
     Indication: Breast cancer metastatic
     Route: 030
     Dates: start: 20191220
  2. FULVESTRANT [Suspect]
     Active Substance: FULVESTRANT
     Indication: Breast cancer
     Route: 030
     Dates: start: 20191220
  3. KISQALI [Suspect]
     Active Substance: RIBOCICLIB
     Indication: Breast cancer metastatic
     Route: 048
     Dates: start: 20191220, end: 20200312
  4. KISQALI [Suspect]
     Active Substance: RIBOCICLIB
     Indication: Breast cancer
     Route: 048
     Dates: start: 20191220, end: 20200312
  5. KISQALI [Suspect]
     Active Substance: RIBOCICLIB
     Indication: Breast cancer metastatic
     Route: 048
     Dates: start: 20200703, end: 20210308
  6. KISQALI [Suspect]
     Active Substance: RIBOCICLIB
     Indication: Breast cancer
     Route: 048
     Dates: start: 20200703, end: 20210308
  7. KISQALI [Suspect]
     Active Substance: RIBOCICLIB
     Indication: Breast cancer metastatic
     Route: 048
     Dates: start: 20200313, end: 20200604
  8. KISQALI [Suspect]
     Active Substance: RIBOCICLIB
     Indication: Breast cancer
     Route: 048
     Dates: start: 20200313, end: 20200604
  9. KISQALI [Suspect]
     Active Substance: RIBOCICLIB
     Indication: Breast cancer metastatic
     Route: 048
     Dates: start: 20200605, end: 20200702
  10. KISQALI [Suspect]
     Active Substance: RIBOCICLIB
     Indication: Breast cancer
     Route: 048
     Dates: start: 20200605, end: 20200702
  11. KISQALI [Suspect]
     Active Substance: RIBOCICLIB
     Indication: Breast cancer metastatic
     Dosage: 400 MG, QD (21 DAYS INTAKE, 7 DAYS PAUSE)
     Route: 048
     Dates: start: 20210319
  12. KISQALI [Suspect]
     Active Substance: RIBOCICLIB
     Indication: Breast cancer
     Dosage: 400 MG, QD (21 DAYS INTAKE, 7 DAYS PAUSE)
     Route: 048
     Dates: start: 20210319

REACTIONS (19)
  - Gaze palsy [Unknown]
  - Sleep disorder [Unknown]
  - General physical health deterioration [Recovering/Resolving]
  - Fall [Recovering/Resolving]
  - Rib fracture [Unknown]
  - Polyneuropathy [Unknown]
  - Respiratory failure [Unknown]
  - Inflammation [Unknown]
  - Dizziness [Unknown]
  - Haematoma [Recovering/Resolving]
  - Endocarditis [Unknown]
  - Dyspnoea [Unknown]
  - Aspiration [Recovering/Resolving]
  - Spinal fracture [Recovering/Resolving]
  - Parkinsonism [Unknown]
  - Choking [Recovering/Resolving]
  - Head injury [Unknown]
  - Spinal cord haematoma [Unknown]
  - Mobility decreased [Not Recovered/Not Resolved]

NARRATIVE: CASE EVENT DATE: 20230202
